FAERS Safety Report 16636988 (Version 1)
Quarter: 2019Q3

REPORT INFORMATION
  Report Type: Spontaneous
  Country: IT (occurrence: IT)
  Receive Date: 20190726
  Receipt Date: 20190726
  Transmission Date: 20191004
  Serious: Yes (Hospitalization)
  Sender: FDA-Public Use
  Company Number: IT-JNJFOC-20190721058

PATIENT
  Age: 83 Year
  Sex: Male

DRUGS (3)
  1. AMIODAR [Concomitant]
     Active Substance: AMIODARONE
     Dosage: 200 MG, QD
  2. TRIATEC [Concomitant]
     Dosage: 25 MG, QD
     Dates: start: 20181001
  3. RIVAROXABAN [Suspect]
     Active Substance: RIVAROXABAN
     Indication: ATRIAL FIBRILLATION
     Route: 048
     Dates: start: 20170517

REACTIONS (2)
  - Occult blood positive [Recovering/Resolving]
  - Anaemia [Recovering/Resolving]

NARRATIVE: CASE EVENT DATE: 20181001
